FAERS Safety Report 12452120 (Version 1)
Quarter: 2016Q2

REPORT INFORMATION
  Report Type: Spontaneous
  Country: US (occurrence: US)
  Receive Date: 20160609
  Receipt Date: 20160609
  Transmission Date: 20160815
  Serious: Yes (Hospitalization, Other)
  Sender: FDA-Public Use
  Company Number: ADR-2015-01410

PATIENT
  Age: 16 Year
  Sex: Male

DRUGS (4)
  1. TRILEPTAL [Suspect]
     Active Substance: OXCARBAZEPINE
  2. LIORESAL [Suspect]
     Active Substance: BACLOFEN
     Dosage: 350.8MCG/DAY
     Route: 037
  3. ZONISAMIDE. [Suspect]
     Active Substance: ZONISAMIDE
  4. ABILIFY [Suspect]
     Active Substance: ARIPIPRAZOLE

REACTIONS (3)
  - Tremor [Recovered/Resolved]
  - Hyperhidrosis [Recovered/Resolved]
  - Abdominal pain [Recovered/Resolved]
